FAERS Safety Report 17440032 (Version 2)
Quarter: 2020Q1

REPORT INFORMATION
  Report Type: Spontaneous
  Country: US (occurrence: US)
  Receive Date: 20200220
  Receipt Date: 20200224
  Transmission Date: 20200409
  Serious: Yes (Other)
  Sender: FDA-Public Use
  Company Number: US-PFIZER INC-2020073893

PATIENT
  Age: 75 Year
  Sex: Male
  Weight: 90 kg

DRUGS (7)
  1. XELJANZ [Suspect]
     Active Substance: TOFACITINIB CITRATE
     Dosage: UNK, 2X/DAY (10MG 1/2 TABLET TWICE A DAY)
     Route: 048
  2. PROZAC [Concomitant]
     Active Substance: FLUOXETINE HYDROCHLORIDE
     Dosage: UNK
  3. FLUOXETINE [Concomitant]
     Active Substance: FLUOXETINE HYDROCHLORIDE
     Indication: ANXIETY
     Dosage: 20 MG, 1X/DAY (AT BED TIME BY MOUTH)
     Route: 048
     Dates: end: 20200204
  4. XELJANZ [Suspect]
     Active Substance: TOFACITINIB CITRATE
     Indication: ARTHRITIS
     Dosage: 10 MG, 2X/DAY
     Route: 048
     Dates: start: 20190919, end: 201911
  5. XELJANZ [Suspect]
     Active Substance: TOFACITINIB CITRATE
     Indication: COLITIS ULCERATIVE
     Dosage: 5 MG, 2X/DAY (5 MG IN THE MORNING AND 5 MG AT NIGHT )
     Route: 048
     Dates: start: 201911
  6. NAPROXEN. [Concomitant]
     Active Substance: NAPROXEN
     Indication: ARTHRALGIA
     Dosage: 500 MG, 1X/DAY
     Route: 048
     Dates: end: 20200201
  7. FERROUS SULFATE. [Concomitant]
     Active Substance: FERROUS SULFATE
     Indication: CONSTIPATION
     Dosage: 324 MG, 1X/DAY
     Route: 048
     Dates: start: 20200124, end: 20200201

REACTIONS (10)
  - Muscle spasms [Recovering/Resolving]
  - Decreased immune responsiveness [Unknown]
  - Haemoglobin decreased [Unknown]
  - Arthralgia [Recovering/Resolving]
  - Haematochezia [Unknown]
  - Red blood cell count decreased [Unknown]
  - Pain [Recovering/Resolving]
  - White blood cell count decreased [Unknown]
  - Condition aggravated [Unknown]
  - Haematocrit decreased [Unknown]

NARRATIVE: CASE EVENT DATE: 20200129
